FAERS Safety Report 16187378 (Version 1)
Quarter: 2019Q2

REPORT INFORMATION
  Report Type: Spontaneous
  Country: NL (occurrence: NL)
  Receive Date: 20190412
  Receipt Date: 20190412
  Transmission Date: 20190711
  Serious: Yes (Hospitalization, Other)
  Sender: FDA-Public Use
  Company Number: NL-AUROBINDO-AUR-APL-2019-018325

PATIENT

DRUGS (1)
  1. VALSARTAN AUROBINDO 320MG FILM-COATED TABLETS [Suspect]
     Active Substance: VALSARTAN
     Indication: HYPERTENSION
     Dosage: 320 MG PER DAG
     Route: 048
     Dates: start: 20160401, end: 20190315

REACTIONS (2)
  - Urinary tract infection [Recovering/Resolving]
  - Renal cyst infection [Recovering/Resolving]

NARRATIVE: CASE EVENT DATE: 20190315
